FAERS Safety Report 10061688 (Version 1)
Quarter: 2014Q2

REPORT INFORMATION
  Report Type: Spontaneous
  Country: US (occurrence: US)
  Receive Date: 20140407
  Receipt Date: 20140407
  Transmission Date: 20141212
  Serious: No
  Sender: FDA-Public Use
  Company Number: US-TARO-2013P1018889

PATIENT
  Age: 52 Year
  Sex: Female
  Weight: 59.88 kg

DRUGS (6)
  1. FLUOROURACIL TOPICAL CREAM USP 5% [Suspect]
     Indication: SQUAMOUS CELL CARCINOMA
     Route: 061
     Dates: start: 20130618, end: 2013
  2. FLUOROURACIL TOPICAL CREAM USP 5% [Suspect]
     Route: 061
     Dates: start: 20130618, end: 2013
  3. FLUOROURACIL TOPICAL CREAM USP 5% [Suspect]
     Indication: SQUAMOUS CELL CARCINOMA
     Route: 061
     Dates: start: 2013, end: 2013
  4. FLUOROURACIL TOPICAL CREAM USP 5% [Suspect]
     Route: 061
     Dates: start: 2013, end: 2013
  5. FLUOROURACIL TOPICAL CREAM USP 5% [Suspect]
     Indication: SQUAMOUS CELL CARCINOMA
     Route: 061
     Dates: start: 20130806
  6. FLUOROURACIL TOPICAL CREAM USP 5% [Suspect]
     Route: 061
     Dates: start: 20130806

REACTIONS (4)
  - Drug ineffective [Not Recovered/Not Resolved]
  - Application site ulcer [Recovered/Resolved]
  - Application site scab [Recovering/Resolving]
  - Product quality issue [Not Recovered/Not Resolved]
